FAERS Safety Report 17240218 (Version 2)
Quarter: 2020Q1

REPORT INFORMATION
  Report Type: Spontaneous
  Country: CA (occurrence: CA)
  Receive Date: 20200107
  Receipt Date: 20200131
  Transmission Date: 20200409
  Serious: Yes (Other)
  Sender: FDA-Public Use
  Company Number: CA-ROCHE-2509529

PATIENT
  Age: 58 Year
  Sex: Male

DRUGS (26)
  1. APO-LEFLUNOMIDE [Suspect]
     Active Substance: LEFLUNOMIDE
     Indication: PRODUCT USED FOR UNKNOWN INDICATION
     Route: 048
  2. CIMZIA [Suspect]
     Active Substance: CERTOLIZUMAB PEGOL
     Indication: PRODUCT USED FOR UNKNOWN INDICATION
     Route: 058
  3. PLAQUENIL [Suspect]
     Active Substance: HYDROXYCHLOROQUINE SULFATE
     Indication: RHEUMATOID ARTHRITIS
     Route: 048
  4. ESOMEPRAZOLE MAGNESIUM TRIHYDRATE [Concomitant]
     Active Substance: ESOMEPRAZOLE MAGNESIUM
     Route: 048
  5. OXYCODONE HYDROCHLORIDE. [Concomitant]
     Active Substance: OXYCODONE HYDROCHLORIDE
  6. ROSUVASTATIN CALCIUM. [Concomitant]
     Active Substance: ROSUVASTATIN CALCIUM
     Route: 048
  7. HYDROXYCHLOROQUINE SULFATE. [Suspect]
     Active Substance: HYDROXYCHLOROQUINE SULFATE
     Indication: PRODUCT USED FOR UNKNOWN INDICATION
     Route: 065
  8. METHOTREXATE. [Suspect]
     Active Substance: METHOTREXATE
     Route: 058
  9. HYDROXYCHLOROQUINE [Suspect]
     Active Substance: HYDROXYCHLOROQUINE
     Indication: PRODUCT USED FOR UNKNOWN INDICATION
     Route: 048
  10. HYDROXYCHLOROQUINE [Suspect]
     Active Substance: HYDROXYCHLOROQUINE
     Route: 065
  11. SULFASALAZINE. [Suspect]
     Active Substance: SULFASALAZINE
     Indication: RHEUMATOID ARTHRITIS
     Route: 065
  12. XELJANZ [Concomitant]
     Active Substance: TOFACITINIB CITRATE
  13. ENBREL [Suspect]
     Active Substance: ETANERCEPT
     Indication: RHEUMATOID ARTHRITIS
     Route: 065
  14. PLAQUENIL [Suspect]
     Active Substance: HYDROXYCHLOROQUINE SULFATE
     Route: 065
  15. NAPROXEN. [Concomitant]
     Active Substance: NAPROXEN
     Route: 065
  16. NAPROXEN. [Concomitant]
     Active Substance: NAPROXEN
     Route: 048
  17. ACTEMRA [Suspect]
     Active Substance: TOCILIZUMAB
     Indication: PRODUCT USED FOR UNKNOWN INDICATION
     Route: 065
  18. VARENICLINE TARTRATE [Suspect]
     Active Substance: VARENICLINE TARTRATE
     Indication: EX-TOBACCO USER
     Route: 048
  19. ESOMEPRAZOLE MAGNESIUM TRIHYDRATE [Concomitant]
     Active Substance: ESOMEPRAZOLE MAGNESIUM
     Route: 048
  20. LEFLUNOMIDE. [Suspect]
     Active Substance: LEFLUNOMIDE
     Indication: PRODUCT USED FOR UNKNOWN INDICATION
     Route: 065
  21. RITUXAN [Suspect]
     Active Substance: RITUXIMAB
     Indication: PRODUCT USED FOR UNKNOWN INDICATION
     Route: 065
  22. ACETAMINOPHEN. [Concomitant]
     Active Substance: ACETAMINOPHEN
  23. METHOTREXATE. [Suspect]
     Active Substance: METHOTREXATE
     Indication: RHEUMATOID ARTHRITIS
     Route: 058
  24. RITUXAN [Suspect]
     Active Substance: RITUXIMAB
     Indication: PRODUCT USED FOR UNKNOWN INDICATION
     Route: 042
  25. ACETAMINOPHEN;OXYCODONE HYDROCHLORIDE [Concomitant]
     Active Substance: ACETAMINOPHEN\OXYCODONE HYDROCHLORIDE
     Route: 048
  26. VALTREX [Concomitant]
     Active Substance: VALACYCLOVIR HYDROCHLORIDE
     Indication: ORAL HERPES
     Route: 048

REACTIONS (8)
  - Therapeutic product effect decreased [Unknown]
  - Drug intolerance [Unknown]
  - Rheumatoid arthritis [Unknown]
  - Stomatitis [Unknown]
  - Drug ineffective [Unknown]
  - Loss of personal independence in daily activities [Unknown]
  - Anti-cyclic citrullinated peptide antibody positive [Unknown]
  - Feeding disorder [Unknown]
